FAERS Safety Report 8554411-3 (Version None)
Quarter: 2012Q3

REPORT INFORMATION
  Report Type: 
  Country: None (occurrence: None)
  Receive Date: 20120731
  Receipt Date: 20120723
  Transmission Date: 20120928
  Serious: Yes (Other)
  Sender: FDA-Public Use
  Company Number: US-009507513-1207USA009895

PATIENT

DRUGS (3)
  1. RAZADYNE [Concomitant]
  2. ZOCOR [Suspect]
     Route: 048
  3. LIPITOR [Suspect]

REACTIONS (2)
  - DEMENTIA [None]
  - AMNESIA [None]
